FAERS Safety Report 6031667-2 (Version None)
Quarter: 2008Q4

REPORT INFORMATION
  Report Type: 
  Country: None (occurrence: None)
  Receive Date: 20081224
  Receipt Date: 20081008
  Transmission Date: 20090506
  Serious: No
  Sender: FDA-Public Use
  Company Number: 2008PV036889

PATIENT
  Age: 60 Year
  Sex: Female
  Weight: 75.7507 kg

DRUGS (8)
  1. SYMLIN [Suspect]
     Indication: TYPE 1 DIABETES MELLITUS
     Dosage: 150 MCG;TID;SC;120 MCG;TID;SC;48 MCGLTID;SC
     Route: 058
     Dates: start: 20070101, end: 20080101
  2. SYMLIN [Suspect]
     Indication: TYPE 1 DIABETES MELLITUS
     Dosage: 150 MCG;TID;SC;120 MCG;TID;SC;48 MCGLTID;SC
     Route: 058
     Dates: start: 20080101, end: 20080101
  3. SYMLIN [Suspect]
     Indication: TYPE 1 DIABETES MELLITUS
     Dosage: 150 MCG;TID;SC;120 MCG;TID;SC;48 MCGLTID;SC
     Route: 058
     Dates: start: 20081008
  4. SYMLIN [Suspect]
     Indication: TYPE 1 DIABETES MELLITUS
     Dosage: 120 MCG; TID;SC
     Route: 058
     Dates: start: 20080701, end: 20081006
  5. HUMALOG [Concomitant]
  6. ACTOS [Concomitant]
  7. CYMBALTA [Concomitant]
  8. VYTORIN [Concomitant]

REACTIONS (3)
  - BLOOD GLUCOSE INCREASED [None]
  - DRUG PRESCRIBING ERROR [None]
  - WEIGHT INCREASED [None]
